FAERS Safety Report 10016193 (Version 2)
Quarter: 2014Q2

REPORT INFORMATION
  Report Type: Spontaneous
  Country: US (occurrence: US)
  Receive Date: 20140317
  Receipt Date: 20140520
  Transmission Date: 20141212
  Serious: Yes (Other)
  Sender: FDA-Public Use
  Company Number: US-BAYER-2014-037484

PATIENT
  Age: 58 Year
  Sex: Female
  Weight: 81.18 kg

DRUGS (2)
  1. BAYER GENUINE ASPIRIN ORIGINAL STRENGTH [Suspect]
     Indication: PRODUCT USED FOR UNKNOWN INDICATION
  2. FENTANYL [Concomitant]
     Indication: PRODUCT USED FOR UNKNOWN INDICATION
     Dosage: 25 MG, UNK
     Route: 062

REACTIONS (4)
  - Gastric haemorrhage [Unknown]
  - Skin haemorrhage [Unknown]
  - Haematemesis [Recovered/Resolved]
  - Rubber sensitivity [Not Recovered/Not Resolved]
